FAERS Safety Report 4974691-0 (Version None)
Quarter: 2006Q2

REPORT INFORMATION
  Report Type: 
  Country: None (occurrence: None)
  Receive Date: 20060417
  Receipt Date: 20060406
  Transmission Date: 20061013
  Serious: Yes (Hospitalization, Other)
  Sender: FDA-Public Use
  Company Number: US-MERCK-0604USA01056

PATIENT
  Age: 50 Year
  Sex: Female
  Weight: 68 kg

DRUGS (14)
  1. VIOXX [Suspect]
     Indication: PAIN IN EXTREMITY
     Route: 048
     Dates: start: 19991206, end: 20040913
  2. VIOXX [Suspect]
     Route: 048
     Dates: start: 19991206, end: 20040913
  3. VIOXX [Suspect]
     Indication: INFLAMMATION
     Route: 048
     Dates: start: 19991206, end: 20040913
  4. VIOXX [Suspect]
     Route: 048
     Dates: start: 19991206, end: 20040913
  5. PREMARIN [Concomitant]
     Route: 065
  6. TARKA [Concomitant]
     Route: 065
  7. NEURONTIN [Concomitant]
     Route: 065
  8. CLARITIN [Concomitant]
     Route: 065
  9. TIMOPTIC [Concomitant]
     Route: 065
  10. TRAZODONE HYDROCHLORIDE [Concomitant]
     Route: 065
  11. PEPCID [Concomitant]
     Route: 065
  12. PULMICORT [Concomitant]
     Route: 065
  13. SEREVENT [Concomitant]
     Route: 065
  14. ATROVENT [Concomitant]
     Route: 065

REACTIONS (17)
  - CARPAL TUNNEL SYNDROME [None]
  - CHEST PAIN [None]
  - CORONARY ARTERY DISEASE [None]
  - CORONARY ARTERY STENOSIS [None]
  - DYSPNOEA [None]
  - ELECTROCARDIOGRAM T WAVE ABNORMAL [None]
  - HAEMORRHOIDS [None]
  - MUSCLE SPASMS [None]
  - MYOCARDIAL INFARCTION [None]
  - MYOCARDIAL ISCHAEMIA [None]
  - NON-CARDIAC CHEST PAIN [None]
  - OEDEMA PERIPHERAL [None]
  - OVERDOSE [None]
  - PAIN IN EXTREMITY [None]
  - ROAD TRAFFIC ACCIDENT [None]
  - SHOULDER PAIN [None]
  - VASCULAR PSEUDOANEURYSM [None]
